FAERS Safety Report 6180842-5 (Version None)
Quarter: 2009Q2

REPORT INFORMATION
  Report Type: 
  Country: None (occurrence: None)
  Receive Date: 20090506
  Receipt Date: 20090429
  Transmission Date: 20091009
  Serious: Yes (Other)
  Sender: FDA-Public Use
  Company Number: CA-WYE-G02805408

PATIENT
  Sex: Male

DRUGS (2)
  1. TACROLIMUS [Suspect]
     Indication: IMMUNOSUPPRESSION
     Dosage: UNKNOWN
     Route: 048
     Dates: start: 20080722
  2. LEFLUNOMIDE [Concomitant]
     Indication: BK VIRUS INFECTION
     Dosage: UNKNOWN
     Dates: start: 20081006

REACTIONS (1)
  - TRANSPLANT REJECTION [None]
